FAERS Safety Report 6277842-3 (Version None)
Quarter: 2009Q3

REPORT INFORMATION
  Report Type: 
  Country: None (occurrence: None)
  Receive Date: 20090717
  Receipt Date: 20090717
  Transmission Date: 20100115
  Serious: No
  Sender: FDA-Public Use
  Company Number: None

PATIENT
  Sex: Female
  Weight: 58.9676 kg

DRUGS (1)
  1. ACTONEL [Suspect]
     Indication: OSTEOPENIA
     Dosage: PO
     Route: 048
     Dates: start: 20070520, end: 20080520

REACTIONS (3)
  - ARTHRALGIA [None]
  - BONE DISORDER [None]
  - LOOSE TOOTH [None]
